FAERS Safety Report 4288360-6 (Version None)
Quarter: 2004Q1

REPORT INFORMATION
  Report Type: 
  Country: None (occurrence: None)
  Receive Date: 20040209
  Receipt Date: 20030917
  Transmission Date: 20041129
  Serious: No
  Sender: FDA-Public Use
  Company Number: US-GLAXOSMITHKLINE-A0426343A

PATIENT
  Age: 92 Year
  Sex: Male

DRUGS (2)
  1. PAXIL [Suspect]
     Indication: DEPRESSION
     Dosage: 30 PER DAY
     Route: 048
     Dates: start: 19940101
  2. ASPIRIN [Concomitant]

REACTIONS (3)
  - BALANCE DISORDER [None]
  - DRY MOUTH [None]
  - ERECTILE DYSFUNCTION [None]
